FAERS Safety Report 5128217-1 (Version None)
Quarter: 2006Q4

REPORT INFORMATION
  Report Type: 
  Country: None (occurrence: None)
  Receive Date: 20061011
  Receipt Date: 20061004
  Transmission Date: 20070319
  Serious: Yes (Other)
  Sender: FDA-Public Use
  Company Number: GXKR2006GB06173

PATIENT
  Age: 18 Year
  Sex: Female
  Weight: 52 kg

DRUGS (3)
  1. CITALOPRAM HYDROBROMIDE [Suspect]
     Indication: DEPRESSION
     Dosage: 20 MG, ORAL
     Route: 048
     Dates: end: 20040620
  2. CANNABIS SATIVA(CANNABIS, CANNABIS SATIVA) [Suspect]
  3. ECSTASY() [Suspect]

REACTIONS (3)
  - DRUG ABUSER [None]
  - HALLUCINATION [None]
  - SUICIDAL IDEATION [None]
